FAERS Safety Report 6579908-7 (Version None)
Quarter: 2010Q1

REPORT INFORMATION
  Report Type: 
  Country: None (occurrence: None)
  Receive Date: 20100212
  Receipt Date: 20100204
  Transmission Date: 20100710
  Serious: Yes (Life-Threatening, Hospitalization)
  Sender: FDA-Public Use
  Company Number: GXKR2010AU01513

PATIENT
  Age: 46 Year
  Sex: Female

DRUGS (4)
  1. FLECAINIDE (NGX) [Suspect]
     Indication: ATRIAL FIBRILLATION
     Dosage: 100 MG, BID
     Route: 065
  2. FLECAINIDE (NGX) [Suspect]
     Indication: SYNCOPE
  3. ANESTHETICS, GENERAL [Suspect]
  4. ACETYLSALICYLIC ACID [Concomitant]
     Dosage: 100 MG/DAY

REACTIONS (10)
  - CARDIO-RESPIRATORY ARREST [None]
  - CARDIOVERSION [None]
  - IMPLANTABLE DEFIBRILLATOR INSERTION [None]
  - INTRA-AORTIC BALLOON PLACEMENT [None]
  - MECHANICAL VENTILATION [None]
  - METABOLIC ACIDOSIS [None]
  - PULMONARY OEDEMA [None]
  - RESUSCITATION [None]
  - STRESS CARDIOMYOPATHY [None]
  - VENTRICULAR FIBRILLATION [None]
